FAERS Safety Report 25237693 (Version 2)
Quarter: 2025Q2

REPORT INFORMATION
  Report Type: Report from Study
  Country: US (occurrence: US)
  Receive Date: 20250425
  Receipt Date: 20250528
  Transmission Date: 20250717
  Serious: Yes (Hospitalization)
  Sender: ACADIA PHARMACEUTICALS
  Company Number: US-ACADIA PHARMACEUTICALS INC.-ACA-2025-TRF-004788

PATIENT
  Sex: Female
  Weight: 29.21 kg

DRUGS (18)
  1. DAYBUE [Suspect]
     Active Substance: TROFINETIDE
     Indication: Rett syndrome
     Dosage: 200 MG/ML, 35 MILLILITER, BID
     Dates: start: 20240408
  2. CALCIUM CARBONATE [Concomitant]
     Active Substance: CALCIUM CARBONATE
  3. MUPIROCIN [Concomitant]
     Active Substance: MUPIROCIN
     Route: 061
  4. PHENOBARBITAL [Concomitant]
     Active Substance: PHENOBARBITAL
  5. CANNABIDIOL [Concomitant]
     Active Substance: CANNABIDIOL
  6. CHOLECALCIFEROL [Concomitant]
     Active Substance: CHOLECALCIFEROL
  7. ALBUTEROL [Concomitant]
     Active Substance: ALBUTEROL
  8. ALBUTEROL [Concomitant]
     Active Substance: ALBUTEROL
  9. ATROPINE OPHTHALMIC [Concomitant]
  10. BUDESONIDE [Concomitant]
     Active Substance: BUDESONIDE
  11. CLOBAZAM [Concomitant]
     Active Substance: CLOBAZAM
  12. FAMOTIDINE [Concomitant]
     Active Substance: FAMOTIDINE
  13. IPRATROPIUM [Concomitant]
     Active Substance: IPRATROPIUM
  14. KETAMINE [Concomitant]
     Active Substance: KETAMINE
  15. LACOSAMIDE [Concomitant]
     Active Substance: LACOSAMIDE
  16. KEPPRA [Concomitant]
     Active Substance: LEVETIRACETAM
  17. MELATONIN [Concomitant]
     Active Substance: MELATONIN
  18. MIDAZOLAM [Concomitant]
     Active Substance: MIDAZOLAM

REACTIONS (4)
  - Lower limb fracture [Not Recovered/Not Resolved]
  - Breath holding [Not Recovered/Not Resolved]
  - Diarrhoea [Recovering/Resolving]
  - Underdose [Unknown]
